FAERS Safety Report 14556646 (Version 1)
Quarter: 2018Q1

REPORT INFORMATION
  Report Type: Spontaneous
  Country: US (occurrence: US)
  Receive Date: 20180221
  Receipt Date: 20180221
  Transmission Date: 20180509
  Serious: No
  Sender: FDA-Public Use
  Company Number: US-PFIZER INC-2018072540

PATIENT
  Age: 62 Year
  Sex: Male
  Weight: 106.59 kg

DRUGS (1)
  1. VIAGRA [Suspect]
     Active Substance: SILDENAFIL CITRATE
     Dosage: 100 MG (APPROXIMATELY 55 MG TABLET TAKE HALF A TABLET ONCE AS NEEDED MAYBE ONCE EVERY 2 WEEKS)

REACTIONS (1)
  - Nasal congestion [Recovered/Resolved]
